FAERS Safety Report 7212142-6 (Version None)
Quarter: 2011Q1

REPORT INFORMATION
  Report Type: 
  Country: None (occurrence: None)
  Receive Date: 20110106
  Receipt Date: 20101223
  Transmission Date: 20110831
  Serious: Yes (Other)
  Sender: FDA-Public Use
  Company Number: CN-BAYER-2011-000753

PATIENT
  Age: 41 Year
  Sex: Female

DRUGS (1)
  1. MIRENA [Suspect]
     Indication: ADENOMYOSIS
     Dosage: 20 A?G, CONTINUOUS
     Route: 015
     Dates: start: 20100901

REACTIONS (2)
  - AMENORRHOEA [None]
  - PERIPHERAL VASCULAR DISORDER [None]
